FAERS Safety Report 7769335-9 (Version None)
Quarter: 2011Q3

REPORT INFORMATION
  Report Type: 
  Country: None (occurrence: None)
  Receive Date: 20110922
  Receipt Date: 20110921
  Transmission Date: 20111222
  Serious: Yes (Other)
  Sender: FDA-Public Use
  Company Number: JP-PFIZER INC-2011224541

PATIENT
  Age: 78 Year
  Sex: Female

DRUGS (3)
  1. AMLODIPINE [Concomitant]
     Dosage: UNK
  2. OLMESARTAN MEDOXOMIL [Concomitant]
     Dosage: UNK
  3. LIPITOR [Suspect]
     Dosage: UNK
     Route: 048
     Dates: start: 20101101, end: 20110719

REACTIONS (3)
  - WEIGHT DECREASED [None]
  - NASOPHARYNGITIS [None]
  - HAEMATURIA [None]
